FAERS Safety Report 21210903 (Version 1)
Quarter: 2022Q3

REPORT INFORMATION
  Report Type: Spontaneous
  Country: US (occurrence: US)
  Receive Date: 20220815
  Receipt Date: 20220815
  Transmission Date: 20221027
  Serious: No
  Sender: FDA-Public Use
  Company Number: US-SANOFI-01228063

PATIENT
  Sex: Male

DRUGS (2)
  1. LANTUS SOLOSTAR [Suspect]
     Active Substance: INSULIN GLARGINE
     Indication: Diabetes mellitus
     Dosage: 5 TO 6 UNITS, BID
  2. NOVOLOG [Concomitant]
     Active Substance: INSULIN ASPART

REACTIONS (6)
  - Gait disturbance [Unknown]
  - Arthralgia [Recovered/Resolved]
  - Arthritis [Unknown]
  - Swelling [Unknown]
  - Pelvic pain [Recovered/Resolved]
  - Inappropriate schedule of product administration [Unknown]
